FAERS Safety Report 5303454-1 (Version None)
Quarter: 2007Q2

REPORT INFORMATION
  Report Type: 
  Country: None (occurrence: None)
  Receive Date: 20070420
  Receipt Date: 20070312
  Transmission Date: 20071010
  Serious: Yes (Other)
  Sender: FDA-Public Use
  Company Number: US-SANOFI-SYNTHELABO-A03200702287

PATIENT
  Sex: Female

DRUGS (3)
  1. ELAVIL [Concomitant]
     Dosage: UNK
     Route: 065
  2. COPAXONE [Concomitant]
     Dosage: UNK
     Route: 065
  3. AMBIEN [Suspect]
     Indication: INSOMNIA
     Route: 048
     Dates: start: 20040101, end: 20050825

REACTIONS (2)
  - ROAD TRAFFIC ACCIDENT [None]
  - SLEEP WALKING [None]
